FAERS Safety Report 4656626-3 (Version None)
Quarter: 2005Q2

REPORT INFORMATION
  Report Type: 
  Country: None (occurrence: None)
  Receive Date: 20050506
  Receipt Date: 20050420
  Transmission Date: 20051028
  Serious: Yes (Hospitalization)
  Sender: FDA-Public Use
  Company Number: 8009371

PATIENT
  Age: 75 Year
  Sex: Female
  Weight: 85 kg

DRUGS (8)
  1. KEPPRA [Suspect]
     Indication: MYOCLONUS
     Dosage: 500 MG 1/D PO
     Route: 048
     Dates: start: 20041225, end: 20041229
  2. KEPPRA [Suspect]
     Indication: STATUS EPILEPTICUS
     Dosage: 500 MG 1/D PO
     Route: 048
     Dates: start: 20041225, end: 20041229
  3. CIPROFLOXACIN HCL [Suspect]
     Dosage: 400 MG ONCE IV
     Route: 042
     Dates: start: 20041228, end: 20041228
  4. LUMINAL [Concomitant]
  5. DIPYRONE TAB [Concomitant]
  6. BELOC ZOK [Concomitant]
  7. TORSEMIDE [Concomitant]
  8. CIPROFLOXACIN HCL [Concomitant]

REACTIONS (5)
  - GENERAL PHYSICAL HEALTH DETERIORATION [None]
  - MYOCLONUS [None]
  - PNEUMONIA [None]
  - SKIN REACTION [None]
  - STATUS EPILEPTICUS [None]
